FAERS Safety Report 8863169 (Version 2)
Quarter: 2013Q1

REPORT INFORMATION
  Report Type: Spontaneous
  Country: FR (occurrence: FR)
  Receive Date: 20121026
  Receipt Date: 20130111
  Transmission Date: 20140127
  Serious: Yes (Hospitalization)
  Sender: FDA-Public Use
  Company Number: FR-BRISTOL-MYERS SQUIBB COMPANY-17061987

PATIENT
  Age: 38 Year
  Sex: Female

DRUGS (4)
  1. LYSODREN [Suspect]
     Indication: ADRENOCORTICAL CARCINOMA
     Dosage: INTER ON 25SEP12;DOSE DECREASED FROM 6G TO 1 G DAILY END JUL12 AND 29OCT12
     Route: 048
     Dates: start: 20120219, end: 20121128
  2. PROZAC [Concomitant]
     Dosage: TABLET
     Route: 048
     Dates: start: 201209, end: 20121005
  3. ADIXONE [Concomitant]
     Indication: ADRENOCORTICAL CARCINOMA
     Dosage: ONGOING
     Dates: start: 201202
  4. HYDROCORTISONE [Concomitant]
     Dosage: ONGOING
     Dates: start: 20120127

REACTIONS (3)
  - Anterograde amnesia [Not Recovered/Not Resolved]
  - Mixed receptive-expressive language disorder [Recovered/Resolved]
  - Overdose [Recovered/Resolved]
